FAERS Safety Report 7790097-3 (Version None)
Quarter: 2011Q3

REPORT INFORMATION
  Report Type: 
  Country: None (occurrence: None)
  Receive Date: 20110930
  Receipt Date: 20100914
  Transmission Date: 20111222
  Serious: No
  Sender: FDA-Public Use
  Company Number: US-ASTRAZENECA-2010SE43525

PATIENT
  Age: 60 Year
  Sex: Female
  Weight: 56.2 kg

DRUGS (4)
  1. XANAX [Concomitant]
  2. ARIMIDEX [Suspect]
     Indication: BREAST CANCER
     Route: 048
     Dates: start: 20100501, end: 20100801
  3. PAXIL [Concomitant]
  4. ASPIRIN [Concomitant]

REACTIONS (2)
  - HYPOAESTHESIA [None]
  - NEUROPATHY PERIPHERAL [None]
